FAERS Safety Report 23647451 (Version 1)
Quarter: 2024Q1

REPORT INFORMATION
  Report Type: Spontaneous
  Country: US (occurrence: US)
  Receive Date: 20240319
  Receipt Date: 20240319
  Transmission Date: 20240410
  Serious: No
  Sender: FDA-Public Use
  Company Number: US-BIOVITRUM-2024-US-004359

PATIENT
  Sex: Male
  Weight: 8.3 kg

DRUGS (2)
  1. SYNAGIS [Suspect]
     Active Substance: PALIVIZUMAB
     Indication: Heart disease congenital
     Dosage: 15 MG/KG MONTHLY?100 MG SDV/INJ PF 1ML?50 MG SDV/INJ PF 0.5ML
     Route: 030
     Dates: start: 202310
  2. SYNAGIS [Suspect]
     Active Substance: PALIVIZUMAB
     Indication: Atrioventricular septal defect

REACTIONS (1)
  - Dyspnoea [Unknown]
